FAERS Safety Report 6135728-9 (Version None)
Quarter: 2009Q1

REPORT INFORMATION
  Report Type: 
  Country: None (occurrence: None)
  Receive Date: 20090327
  Receipt Date: 20090312
  Transmission Date: 20090719
  Serious: Yes (Death)
  Sender: FDA-Public Use
  Company Number: JP-PFIZER INC-2009169015

PATIENT
  Sex: Male
  Weight: 51 kg

DRUGS (11)
  1. SUNITINIB MALATE [Suspect]
     Indication: RENAL CELL CARCINOMA
     Dosage: 25 MG, 1X/DAY
     Route: 048
     Dates: start: 20081223, end: 20090106
  2. LIPITOR [Concomitant]
     Route: 048
     Dates: end: 20090106
  3. RISPERDAL [Concomitant]
     Route: 048
     Dates: start: 20081202, end: 20090106
  4. LASIX [Concomitant]
     Route: 048
     Dates: start: 20081217, end: 20090106
  5. CELLCEPT [Concomitant]
     Route: 048
     Dates: end: 20090106
  6. CEROCRAL [Concomitant]
     Route: 048
     Dates: start: 20081212, end: 20090106
  7. CARDENALIN [Concomitant]
     Route: 048
     Dates: end: 20090106
  8. OXYCONTIN [Concomitant]
     Dates: start: 20080702, end: 20090106
  9. ACECOL [Concomitant]
     Route: 048
     Dates: end: 20090106
  10. ARTIST [Concomitant]
     Route: 048
     Dates: end: 20090106
  11. ITOROL [Concomitant]
     Route: 048
     Dates: end: 20090106

REACTIONS (2)
  - DISEASE PROGRESSION [None]
  - RENAL CELL CARCINOMA [None]
